FAERS Safety Report 5897852-5 (Version None)
Quarter: 2008Q3

REPORT INFORMATION
  Report Type: 
  Country: None (occurrence: None)
  Receive Date: 20080924
  Receipt Date: 20080924
  Transmission Date: 20090109
  Serious: Yes (Other)
  Sender: FDA-Public Use
  Company Number: None

PATIENT
  Age: 25 Year
  Sex: Female
  Weight: 92.9874 kg

DRUGS (1)
  1. AZITHROMYCIN [Suspect]
     Indication: ANTIBIOTIC PROPHYLAXIS
     Dosage: 500MG ONCE PO
     Route: 048
     Dates: start: 20080916, end: 20080923

REACTIONS (3)
  - GLOSSODYNIA [None]
  - ORAL PRURITUS [None]
  - SWOLLEN TONGUE [None]
